FAERS Safety Report 5946701-5 (Version None)
Quarter: 2008Q4

REPORT INFORMATION
  Report Type: 
  Country: None (occurrence: None)
  Receive Date: 20081110
  Receipt Date: 20081014
  Transmission Date: 20090506
  Serious: No
  Sender: FDA-Public Use
  Company Number: A0748687A

PATIENT
  Age: 13 Year
  Sex: Male
  Weight: 60 kg

DRUGS (1)
  1. ALTABAX [Suspect]
     Indication: BLISTER INFECTED
     Dates: start: 20080910, end: 20080910

REACTIONS (5)
  - ERYTHEMA [None]
  - ILL-DEFINED DISORDER [None]
  - MUSCLE CONTRACTURE [None]
  - PAIN [None]
  - RASH [None]
